FAERS Safety Report 15282968 (Version 1)
Quarter: 2018Q3

REPORT INFORMATION
  Report Type: Spontaneous
  Country: DE (occurrence: DE)
  Receive Date: 20180816
  Receipt Date: 20180816
  Transmission Date: 20181010
  Serious: Yes (Hospitalization)
  Sender: FDA-Public Use
  Company Number: DE-TEVA-2018-DE-907693

PATIENT
  Age: 76 Year
  Sex: Male

DRUGS (26)
  1. NITROSPRAY [Concomitant]
     Active Substance: NITROGLYCERIN
     Dosage: NEED
     Route: 065
  2. METAMIZOL [Concomitant]
     Active Substance: METAMIZOLE SODIUM
     Dosage: NEED
     Route: 065
  3. ADENURIC [Concomitant]
     Active Substance: FEBUXOSTAT
     Dosage: 0?0?1?0 /2. TAG
     Route: 065
  4. FUROSEMIDE. [Concomitant]
     Active Substance: FUROSEMIDE
     Dosage: 1?1?0?0
     Route: 065
  5. KALINOR [Concomitant]
     Dosage: 1?1?0?0
     Route: 065
  6. BROMAZEPAM [Concomitant]
     Active Substance: BROMAZEPAM
     Dosage: NEED
     Route: 065
  7. XIPAMIDE [Concomitant]
     Active Substance: XIPAMIDE
     Dosage: 1?0?0?0
     Route: 065
  8. TAMSULOSIN [Concomitant]
     Active Substance: TAMSULOSIN
     Dosage: 0?0?1?0
     Route: 065
  9. AVAMYS [Concomitant]
     Active Substance: FLUTICASONE FUROATE
     Dosage: NK MG, NEED.
     Route: 065
  10. BERODUAL [Concomitant]
     Active Substance: FENOTEROL HYDROBROMIDE\IPRATROPIUM BROMIDE
     Dosage: 1?1?0?0
     Route: 065
  11. SIMVASTATIN. [Concomitant]
     Active Substance: SIMVASTATIN
     Dosage: 0?0?1?0
     Route: 065
  12. INSULIN HUMAN [Concomitant]
     Active Substance: INSULIN HUMAN
     Dosage: 14?0?24?0
     Route: 065
  13. CLOPIDOGREL [Concomitant]
     Active Substance: CLOPIDOGREL BISULFATE
     Dosage: 1?0?0?0
     Route: 065
  14. MAGNESIUM [Concomitant]
     Active Substance: MAGNESIUM
     Dosage: 0?0?0?1
     Route: 065
  15. MOLSIHEXAL [Concomitant]
     Active Substance: MOLSIDOMINE
     Dosage: 0?0?0?1
     Route: 065
  16. SPIRIVA [Concomitant]
     Active Substance: TIOTROPIUM BROMIDE MONOHYDRATE
     Dosage: 1?0?0?0
     Route: 065
  17. ACC [Concomitant]
     Active Substance: ACETYLCYSTEINE
     Dosage: NEED
     Route: 065
  18. COLECALCIFEROL [Concomitant]
     Active Substance: CHOLECALCIFEROL
     Dosage: 1?0?0?0
     Route: 065
  19. SYMBICORT [Concomitant]
     Active Substance: BUDESONIDE\FORMOTEROL FUMARATE DIHYDRATE
     Dosage: 160|4.5 MG, 1?0?1?0
     Route: 065
  20. TILIDINE [Concomitant]
     Active Substance: TILIDINE
     Dosage: 50|4 MG, 1?0?1?0
     Route: 065
  21. METOPROLOL. [Suspect]
     Active Substance: METOPROLOL
     Dosage: 1?0?1?0
     Route: 065
  22. SALBUTAMOL [Concomitant]
     Active Substance: ALBUTEROL
     Dosage: NEED
     Route: 065
  23. ISOKET [Concomitant]
     Active Substance: ISOSORBIDE DINITRATE
     Dosage: 1?1?0?0
     Route: 065
  24. ACETYLSALICYLSAEURE [Concomitant]
     Active Substance: ASPIRIN
     Dosage: 1?0?0?0
     Route: 065
  25. EZETROL [Concomitant]
     Active Substance: EZETIMIBE
     Dosage: 0?0?0?1
     Route: 065
  26. ATROVENT [Concomitant]
     Active Substance: IPRATROPIUM BROMIDE
     Dosage: NEED
     Route: 065

REACTIONS (3)
  - Cough [Unknown]
  - Drug prescribing error [Unknown]
  - Dyspnoea [Unknown]

NARRATIVE: CASE EVENT DATE: 20161206
